FAERS Safety Report 4426453-0 (Version None)
Quarter: 2004Q3

REPORT INFORMATION
  Report Type: 
  Country: None (occurrence: None)
  Receive Date: 20040815
  Receipt Date: 20040804
  Transmission Date: 20050211
  Serious: Yes (Hospitalization)
  Sender: FDA-Public Use
  Company Number: DE-MERCK-0408DEU00035

PATIENT
  Age: 42 Year
  Sex: Male

DRUGS (2)
  1. CRIXIVAN [Suspect]
     Indication: HIV INFECTION
     Route: 048
     Dates: start: 20030201
  2. LOPINAVIR AND RITONAVIR [Concomitant]
     Route: 065
     Dates: start: 20030201

REACTIONS (4)
  - CRYOGLOBULINS PRESENT [None]
  - ERYTHROPOIESIS ABNORMAL [None]
  - HAEMOLYTIC ANAEMIA [None]
  - HEPATITIS B [None]
